FAERS Safety Report 5805930-1 (Version None)
Quarter: 2008Q3

REPORT INFORMATION
  Report Type: 
  Country: None (occurrence: None)
  Receive Date: 20080710
  Receipt Date: 20080703
  Transmission Date: 20090109
  Serious: Yes (Hospitalization, Other)
  Sender: FDA-Public Use
  Company Number: US-ASTRAZENECA-2007UW18876

PATIENT
  Age: 54 Year
  Sex: Female
  Weight: 72.7 kg

DRUGS (2)
  1. SEROQUEL [Suspect]
     Indication: DEPRESSION
     Route: 048
     Dates: start: 20000331, end: 20041022
  2. SEROQUEL [Suspect]
     Indication: ANXIETY
     Route: 048
     Dates: start: 20000331, end: 20041022

REACTIONS (4)
  - BREAST CANCER [None]
  - BREAST OPERATION [None]
  - DIABETES MELLITUS [None]
  - GALLBLADDER OPERATION [None]
